FAERS Safety Report 5809334-7 (Version None)
Quarter: 2008Q3

REPORT INFORMATION
  Report Type: 
  Country: None (occurrence: None)
  Receive Date: 20080714
  Receipt Date: 20080702
  Transmission Date: 20090109
  Serious: Yes (Other)
  Sender: FDA-Public Use
  Company Number: PHHY2008AU12612

PATIENT
  Sex: Male

DRUGS (8)
  1. VOLTAREN [Suspect]
     Dosage: UNK
     Dates: start: 20030501
  2. NAPROSYN [Suspect]
     Dosage: UNK
     Dates: start: 19990210, end: 20030501
  3. AMOXICILLIN [Concomitant]
     Dosage: UNK
     Dates: start: 20060823
  4. BISOLVON [Concomitant]
  5. COLCHICINE [Concomitant]
     Indication: GOUT
  6. VENTOLIN [Concomitant]
  7. CLAMOXYL DUO FORTE [Concomitant]
     Dosage: UNK
     Dates: start: 20070515
  8. ZYLOPRIM [Concomitant]

REACTIONS (9)
  - BLOOD CREATININE INCREASED [None]
  - BLOOD UREA INCREASED [None]
  - BLOOD URIC ACID INCREASED [None]
  - EPIDERMAL GROWTH FACTOR RECEPTOR DECREASED [None]
  - GLOMERULAR FILTRATION RATE DECREASED [None]
  - HYPERTENSION [None]
  - PERITONEAL DIALYSIS [None]
  - RED BLOOD CELL SEDIMENTATION RATE INCREASED [None]
  - RENAL FAILURE [None]
